FAERS Safety Report 4294008-7 (Version None)
Quarter: 2004Q1

REPORT INFORMATION
  Report Type: 
  Country: None (occurrence: None)
  Receive Date: 20040211
  Receipt Date: 20040127
  Transmission Date: 20041129
  Serious: Yes (Hospitalization)
  Sender: FDA-Public Use
  Company Number: FR_040103495

PATIENT
  Age: 1 Day
  Sex: Male
  Weight: 1750 kg

DRUGS (3)
  1. HUMALOG [Suspect]
     Dates: start: 20030220, end: 20030801
  2. INSULIN [Concomitant]
  3. AMOXICILLIN TRIHYDRATE [Concomitant]

REACTIONS (4)
  - CAESAREAN SECTION [None]
  - FOETAL DISORDER [None]
  - GLYCOSYLATED HAEMOGLOBIN INCREASED [None]
  - STRABISMUS [None]
